FAERS Safety Report 13031837 (Version 4)
Quarter: 2017Q1

REPORT INFORMATION
  Report Type: Spontaneous
  Country: US (occurrence: US)
  Receive Date: 20161215
  Receipt Date: 20170329
  Transmission Date: 20170428
  Serious: Yes (Hospitalization, Other)
  Sender: FDA-Public Use
  Company Number: US-PFIZER INC-2016570915

PATIENT
  Age: 12 Year
  Sex: Female
  Weight: 54.42 kg

DRUGS (42)
  1. KEPPRA [Concomitant]
     Active Substance: LEVETIRACETAM
     Dosage: 750 MG, 2X/DAY (TAKE 2 TABLETS (1500 MG TOTAL))
     Route: 048
  2. PURINETHOL [Concomitant]
     Active Substance: MERCAPTOPURINE
     Dosage: 800 MG, WEEKLY(125 (2 AND HALF) TABS DAILY X 4 DAYS AND 100 MG (2 TABS X 3 DAYS)
  3. NEURONTIN [Concomitant]
     Active Substance: GABAPENTIN
     Dosage: 600 MG, 3X/DAY
     Route: 048
  4. BIOGAIA [Concomitant]
     Active Substance: LACTOBACILLUS REUTERI
     Dosage: 1 DF, 1X/DAY
     Route: 048
  5. SENNA S [Concomitant]
     Active Substance: DOCUSATE SODIUM\SENNA LEAF
     Dosage: ONE TIME A DAY AS NEEDED (SENNOSIDES 8.6 MG/ DOCUSATE SODIUM 50MG)
     Route: 048
  6. LOPERAMIDE [Concomitant]
     Active Substance: LOPERAMIDE
     Dosage: 2 MG, UNK
  7. PROCHLORPERAZINE. [Concomitant]
     Active Substance: PROCHLORPERAZINE
     Dosage: 10 MG, UNK
  8. MARINOL [Concomitant]
     Active Substance: DRONABINOL
     Dosage: 5 MG, 2X/DAY(EVERY 12 HOURS) BEFORE MEALS
     Route: 048
  9. METHOTREXATE. [Concomitant]
     Active Substance: METHOTREXATE
     Indication: ACUTE LYMPHOCYTIC LEUKAEMIA
     Dosage: 15 MG, WEEKLY (1 TIME A WEEK FOR 3 DAYS)
     Route: 048
  10. 6-MP [Concomitant]
     Active Substance: MERCAPTOPURINE
     Indication: ACUTE LYMPHOCYTIC LEUKAEMIA
     Dosage: UNK, DAILY
     Route: 048
  11. DECADRON [Concomitant]
     Active Substance: DEXAMETHASONE
     Dosage: 0.5 MG, 2X/DAY (FOR 4 DAYS TAKE WITH A 4 MG TABLET FOR A TOTAL OF 4.5 MG)
     Route: 048
  12. DECADRON [Concomitant]
     Active Substance: DEXAMETHASONE
     Dosage: 4 MG, 2X/DAY (TAKE WITH 0.5 MG FOR A TOTAL OF 4.5 MG)
     Route: 048
  13. VITAMIN D3 [Concomitant]
     Active Substance: CHOLECALCIFEROL
     Dosage: 400 UNITS, 1X/DAY
     Route: 048
  14. MERCAPTOPURINE. [Concomitant]
     Active Substance: MERCAPTOPURINE
     Dosage: 50 MG, UNK
     Route: 048
  15. PEPCID [Concomitant]
     Active Substance: FAMOTIDINE
     Dosage: 20 MG, 2X/DAY (TAKE 1 TABLET BY MOUTH 2 TIMES A DAY FOR 7 DAYS WHEN ON STEROIDS)
     Route: 048
  16. AMOXIL [Concomitant]
     Active Substance: AMOXICILLIN
     Dosage: 500 MG, 1X/DAY(GIVEN IN THE MORNING)
     Route: 048
  17. TYLENOL [Concomitant]
     Active Substance: ACETAMINOPHEN
     Indication: PAIN
     Dosage: 325 MG, AS NEEDED (TAKE 2 TABLETS (650 MG TOTAL) BY MOUTH EVERY 6 HOURS AS NEEDED FOR UP TO 30DOSES)
     Route: 048
  18. LACTOBACILLUS [Concomitant]
     Active Substance: LACTOBACILLUS ACIDOPHILUS
     Dosage: UNK
  19. ZOFRAN ODT [Concomitant]
     Active Substance: ONDANSETRON HYDROCHLORIDE
     Indication: VOMITING
  20. DEXAMETHASONE. [Concomitant]
     Active Substance: DEXAMETHASONE
     Dosage: 4 MG, UNK
  21. BOSULIF [Suspect]
     Active Substance: BOSUTINIB MONOHYDRATE
     Indication: ACUTE LYMPHOCYTIC LEUKAEMIA
     Dosage: 500 MG, 1X/DAY (IN THE EVENINGS)
     Route: 048
     Dates: start: 20161110
  22. PULMICORT TURBUHALER [Concomitant]
     Active Substance: BUDESONIDE
     Indication: COUGH
  23. ZOFRAN ODT [Concomitant]
     Active Substance: ONDANSETRON HYDROCHLORIDE
     Indication: NAUSEA
     Dosage: 8 MG, AS NEEDED (EVERY 8 HOURS, FOR UP TO 30 DOSES DISSOLVE TABLET ON TONGUE)
     Route: 048
  24. COMPAZINE [Concomitant]
     Active Substance: PROCHLORPERAZINE MALEATE
     Indication: NAUSEA
     Dosage: 10 MG, AS NEEDED (EVERY 8 HOURS, FOR UP TO 30 DOSES)
     Route: 048
  25. COUMADIN [Concomitant]
     Active Substance: WARFARIN SODIUM
     Dosage: 5.25 MG, 1X/DAY(0.875 TABLETS (5.25 MG TOTAL))
     Route: 048
  26. COUMADIN [Concomitant]
     Active Substance: WARFARIN SODIUM
     Dosage: 10 MG, 1X/DAY (TAKE 1 TABLET (10 MG TOTAL) )
     Route: 048
  27. DILAUDID [Concomitant]
     Active Substance: HYDROMORPHONE HYDROCHLORIDE
     Dosage: 2 MG, AS NEEDED(EVERY 6 HOURS AS NEEDED)
     Route: 048
  28. ASPIRIN. [Concomitant]
     Active Substance: ASPIRIN
     Dosage: 81 MG, ON SUNDAY AND WEDNESDAY
     Route: 048
  29. PULMICORT TURBUHALER [Concomitant]
     Active Substance: BUDESONIDE
     Indication: DYSPNOEA
     Dosage: 1 UNIT DOSE, AS NEEDED (BY NEBULIZATION 2 TIMES A DAY AS NEEDED)
     Route: 055
  30. METHOTREXATE. [Concomitant]
     Active Substance: METHOTREXATE
     Dosage: 2.5 MG, UNK
  31. COMPAZINE [Concomitant]
     Active Substance: PROCHLORPERAZINE MALEATE
     Indication: VOMITING
  32. DEXAMETHASONE. [Concomitant]
     Active Substance: DEXAMETHASONE
     Dosage: 0.5 MG, UNK
     Route: 048
  33. VITAMIN D3 [Concomitant]
     Active Substance: CHOLECALCIFEROL
     Dosage: 400 IU, UNK
  34. PULMICORT TURBUHALER [Concomitant]
     Active Substance: BUDESONIDE
     Indication: WHEEZING
     Dosage: UNK (0.5 MG/2 ML INHALATION SOLUTION)
  35. IMODIUM [Concomitant]
     Active Substance: LOPERAMIDE HYDROCHLORIDE
     Indication: DIARRHOEA
     Dosage: UNK(2CAPS AFTER FIRST LOOSE STOOL, THEN 1 CAP AFTER EACH LOOSE STOOL, BUT NO MORE THAN8CAPS PER DAY)
  36. DURAGESIC-12 [Concomitant]
     Dosage: 12 UG, UNK (APPLY 1 PATCH (12 MCG TOTAL) TO THE SKIN EVERY 72 HOURS)
     Route: 062
  37. FAMOTIDINE. [Concomitant]
     Active Substance: FAMOTIDINE
     Dosage: 20 MG, UNK
  38. PURINETHOL [Concomitant]
     Active Substance: MERCAPTOPURINE
     Dosage: 75 MG, 1X/DAY (TAKE 1.5 TABLETS (75 MG TOTAL))
  39. ADVAIR HFA [Concomitant]
     Active Substance: FLUTICASONE PROPIONATE\SALMETEROL XINAFOATE
     Dosage: 1 DF, 2X/DAY [FLUTICASONE PROPIONATE 100MCG]/[SALMETEROL XINAFOATE 50MCG]
     Route: 048
  40. EMLA [Concomitant]
     Active Substance: LIDOCAINE\PRILOCAINE
     Dosage: UNK [LIDOCAINE 2.5%]/[PRILOCAINE-2.5%] APPLY TO VENIPUNCTURE OR PORT SITE 30 MINUTES PRIOR TO ACCESS
  41. VINCRISTINE [Concomitant]
     Active Substance: VINCRISTINE
     Indication: ACUTE LYMPHOCYTIC LEUKAEMIA
     Dosage: UNK
  42. DRONABINOL. [Concomitant]
     Active Substance: DRONABINOL
     Dosage: 5 MG, UNK

REACTIONS (18)
  - Red blood cell count decreased [Unknown]
  - Haematocrit decreased [Unknown]
  - Alanine aminotransferase increased [Unknown]
  - Decreased appetite [Unknown]
  - Haemoglobin decreased [Unknown]
  - Blood corticotrophin decreased [Unknown]
  - Dizziness [Unknown]
  - Pain [Recovered/Resolved]
  - Malaise [Unknown]
  - Dehydration [Recovered/Resolved]
  - Hyperglycaemia [Unknown]
  - Product use issue [Unknown]
  - Nausea [Not Recovered/Not Resolved]
  - Lung infection [Unknown]
  - Blood bilirubin increased [Unknown]
  - Vomiting [Recovered/Resolved]
  - Abdominal pain [Recovered/Resolved]
  - Aspartate aminotransferase increased [Unknown]

NARRATIVE: CASE EVENT DATE: 20161110
